FAERS Safety Report 4538094-5 (Version None)
Quarter: 2004Q4

REPORT INFORMATION
  Report Type: 
  Country: None (occurrence: None)
  Receive Date: 20041223
  Receipt Date: 20041223
  Transmission Date: 20050328
  Serious: No
  Sender: FDA-Public Use
  Company Number: None

PATIENT
  Age: 59 Year
  Sex: Female

DRUGS (1)
  1. ADVAIR DISKUS 500/50 [Suspect]
     Indication: ASTHMA
     Dosage: ONE INHALATION  TWICE DAILY
     Route: 055

REACTIONS (4)
  - COUGH [None]
  - DRY MOUTH [None]
  - DRY THROAT [None]
  - MEDICAL DEVICE COMPLICATION [None]
